FAERS Safety Report 18901789 (Version 2)
Quarter: 2021Q1

REPORT INFORMATION
  Report Type: Spontaneous
  Country: PT (occurrence: PT)
  Receive Date: 20210217
  Receipt Date: 20210226
  Transmission Date: 20210420
  Serious: Yes (Death, Life-Threatening, Hospitalization, Other)
  Sender: FDA-Public Use
  Company Number: PT-SA-2021SA053646

PATIENT
  Age: 73 Year
  Sex: Female

DRUGS (7)
  1. MYCOPHENOLATE MOFETIL. [Suspect]
     Active Substance: MYCOPHENOLATE MOFETIL
     Indication: IMMUNOSUPPRESSANT DRUG THERAPY
     Dosage: 500 MG, QD
     Dates: start: 2010, end: 2019
  2. PREDNISOLONE. [Suspect]
     Active Substance: PREDNISOLONE
     Indication: IMMUNOSUPPRESSANT DRUG THERAPY
     Dosage: 5 MG
     Dates: start: 2010
  3. TACROLIMUS. [Suspect]
     Active Substance: TACROLIMUS
     Indication: IMMUNOSUPPRESSANT DRUG THERAPY
     Dosage: TROUGH LEVELS 4?7 NG/ML
     Dates: start: 2010, end: 2019
  4. TACROLIMUS. [Suspect]
     Active Substance: TACROLIMUS
     Dosage: TROUGH LEVELS 2?4 NG/ML
     Dates: start: 2019
  5. TACROLIMUS. [Suspect]
     Active Substance: TACROLIMUS
     Dosage: UNK
  6. PREDNISOLONE. [Suspect]
     Active Substance: PREDNISOLONE
     Dosage: UNK
  7. MYCOPHENOLATE MOFETIL. [Suspect]
     Active Substance: MYCOPHENOLATE MOFETIL
     Dosage: UNK

REACTIONS (27)
  - Pseudomonas infection [Fatal]
  - Serratia bacteraemia [Fatal]
  - Mouth ulceration [Recovered/Resolved]
  - Mucocutaneous leishmaniasis [Fatal]
  - Cachexia [Fatal]
  - Blister [Fatal]
  - Pallor [Fatal]
  - Pseudomonal bacteraemia [Fatal]
  - Pyrexia [Fatal]
  - Pancytopenia [Fatal]
  - Serratia infection [Fatal]
  - Oral disorder [Recovered/Resolved]
  - Cutaneous leishmaniasis [Fatal]
  - Weight decreased [Fatal]
  - Skin ulcer [Fatal]
  - Mucosal ulceration [Recovered/Resolved]
  - Visceral leishmaniasis [Fatal]
  - Nasal mucosal disorder [Fatal]
  - Nasal oedema [Fatal]
  - Skin lesion [Fatal]
  - Malnutrition [Fatal]
  - Asthenia [Fatal]
  - Herpes simplex [Recovered/Resolved]
  - Oral herpes [Recovered/Resolved]
  - Disseminated leishmaniasis [Fatal]
  - Decreased appetite [Fatal]
  - Skin mass [Fatal]

NARRATIVE: CASE EVENT DATE: 2017
